FAERS Safety Report 5814437-7 (Version None)
Quarter: 2008Q3

REPORT INFORMATION
  Report Type: 
  Country: None (occurrence: None)
  Receive Date: 20080718
  Receipt Date: 20080707
  Transmission Date: 20090109
  Serious: Yes (Other)
  Sender: FDA-Public Use
  Company Number: PHHY2008FR13427

PATIENT
  Sex: Female

DRUGS (2)
  1. TAREG [Suspect]
     Dosage: 80 MG/DAY
     Dates: end: 20080608
  2. AMLOR [Concomitant]
     Dosage: 5 MG, UNK
     Dates: end: 20080608

REACTIONS (8)
  - AGRANULOCYTOSIS [None]
  - ASTHENIA [None]
  - CHILLS [None]
  - LEUKOPENIA [None]
  - LYMPHOCYTOSIS [None]
  - MONOCYTE COUNT INCREASED [None]
  - NEUTROPENIA [None]
  - PYREXIA [None]
